FAERS Safety Report 11951287 (Version 1)
Quarter: 2016Q1

REPORT INFORMATION
  Report Type: Report from Study
  Country: US (occurrence: US)
  Receive Date: 20160126
  Receipt Date: 20160126
  Transmission Date: 20160526
  Serious: Yes (Other)
  Sender: FDA-Public Use
  Company Number: US-JNJFOC-20160116657

PATIENT
  Age: 55 Year
  Sex: Female
  Weight: 75.75 kg

DRUGS (3)
  1. JANUVIA [Concomitant]
     Active Substance: SITAGLIPTIN PHOSPHATE
     Indication: DIABETES MELLITUS
     Route: 065
  2. FETZIMA [Concomitant]
     Active Substance: LEVOMILNACIPRAN HYDROCHLORIDE
     Indication: DEPRESSION
     Route: 065
  3. REMICADE [Suspect]
     Active Substance: INFLIXIMAB
     Indication: CROHN^S DISEASE
     Route: 042
     Dates: start: 2015, end: 201512

REACTIONS (7)
  - Drug specific antibody present [Unknown]
  - Feeling abnormal [Unknown]
  - Loss of consciousness [Recovered/Resolved]
  - Dizziness [Unknown]
  - Blood pressure decreased [Unknown]
  - Pruritus [Unknown]
  - Infusion related reaction [Unknown]

NARRATIVE: CASE EVENT DATE: 201512
